FAERS Safety Report 5917108-1 (Version None)
Quarter: 2008Q4

REPORT INFORMATION
  Report Type: 
  Country: None (occurrence: None)
  Receive Date: 20081014
  Receipt Date: 20081006
  Transmission Date: 20090506
  Serious: Yes (Death)
  Sender: FDA-Public Use
  Company Number: US-ELI_LILLY_AND_COMPANY-US200810001413

PATIENT
  Age: 70 Year
  Sex: Male

DRUGS (1)
  1. XIGRIS [Suspect]
     Indication: SEPSIS

REACTIONS (2)
  - ANAEMIA [None]
  - DEATH [None]
